FAERS Safety Report 5027638-5 (Version None)
Quarter: 2006Q2

REPORT INFORMATION
  Report Type: 
  Country: None (occurrence: None)
  Receive Date: 20060614
  Receipt Date: 20060614
  Transmission Date: 20061013
  Serious: Yes (Other)
  Sender: FDA-Public Use
  Company Number: None

PATIENT
  Age: 70 Year
  Sex: Male
  Weight: 99.7913 kg

DRUGS (1)
  1. AMBIEN [Suspect]
     Indication: CIRCADIAN RHYTHM SLEEP DISORDER
     Dosage: ONE AT BEDTIME AS NEEDED
     Dates: start: 20040101, end: 20060608

REACTIONS (4)
  - ABNORMAL BEHAVIOUR [None]
  - ABNORMAL SLEEP-RELATED EVENT [None]
  - AMNESIA [None]
  - SCRATCH [None]
